FAERS Safety Report 24399853 (Version 1)
Quarter: 2024Q4

REPORT INFORMATION
  Report Type: Spontaneous
  Country: CN (occurrence: CN)
  Receive Date: 20241005
  Receipt Date: 20241005
  Transmission Date: 20250114
  Serious: Yes (Other)
  Sender: BAXTER
  Company Number: None

PATIENT
  Age: 24 Year
  Sex: Female
  Weight: 74 kg

DRUGS (2)
  1. CYCLOPHOSPHAMIDE [Suspect]
     Active Substance: CYCLOPHOSPHAMIDE
     Indication: Aplastic anaemia
     Dosage: 3360 MG, ONE TIME IN ONE DAY
     Route: 041
     Dates: start: 20240918, end: 20240921
  2. LAPINE T-LYMPHOCYTE IMMUNE GLOBULIN [Suspect]
     Active Substance: LAPINE T-LYMPHOCYTE IMMUNE GLOBULIN
     Indication: Autologous haematopoietic stem cell transplant
     Dosage: 175 MG, ONE TIME IN ONE DAY
     Route: 041
     Dates: start: 20240918, end: 20240921

REACTIONS (3)
  - Dysuria [Recovering/Resolving]
  - Pyrexia [Recovering/Resolving]
  - Pruritus [Recovering/Resolving]

NARRATIVE: CASE EVENT DATE: 20240918
